FAERS Safety Report 6114671-5 (Version None)
Quarter: 2009Q1

REPORT INFORMATION
  Report Type: 
  Country: None (occurrence: None)
  Receive Date: 20090311
  Receipt Date: 20080226
  Transmission Date: 20090719
  Serious: Yes (Other)
  Sender: FDA-Public Use
  Company Number: US200802001466

PATIENT
  Age: 75 Year
  Sex: Female

DRUGS (5)
  1. GEMZAR [Suspect]
     Indication: BREAST CANCER METASTATIC
     Dosage: 1000 MG/M2, OTHER, UNK
     Dates: start: 20061101, end: 20070201
  2. ALOXI [Concomitant]
  3. ZESTRIL [Concomitant]
  4. EFFEXOR XR [Concomitant]
  5. SYNTHROID [Concomitant]

REACTIONS (2)
  - MALIGNANT NEOPLASM PROGRESSION [None]
  - NECK PAIN [None]
